FAERS Safety Report 9296228 (Version 2)
Quarter: 2013Q4

REPORT INFORMATION
  Report Type: Spontaneous
  Country: US (occurrence: US)
  Receive Date: 20130517
  Receipt Date: 20131010
  Transmission Date: 20140711
  Serious: Yes (Hospitalization)
  Sender: FDA-Public Use
  Company Number: US-TEVA-405400USA

PATIENT
  Age: 28 Year
  Sex: Male

DRUGS (1)
  1. COPAXONE [Suspect]
     Indication: MULTIPLE SCLEROSIS
     Dates: start: 20130424

REACTIONS (9)
  - Drug hypersensitivity [Unknown]
  - Convulsion [Unknown]
  - Dyspnoea [Unknown]
  - Lip swelling [Unknown]
  - Hypoaesthesia [Unknown]
  - Hypotension [Unknown]
  - Abasia [Unknown]
  - Fall [Unknown]
  - Sensory disturbance [Unknown]
